FAERS Safety Report 17654812 (Version 1)
Quarter: 2020Q2

REPORT INFORMATION
  Report Type: Report from Study
  Country: US (occurrence: US)
  Receive Date: 20200410
  Receipt Date: 20200410
  Transmission Date: 20200713
  Serious: Yes (Death)
  Sender: FDA-Public Use
  Company Number: US-BIOGEN-2020BI00859701

PATIENT
  Age: 51 Year
  Sex: Male

DRUGS (1)
  1. TECFIDERA [Suspect]
     Active Substance: DIMETHYL FUMARATE
     Indication: MULTIPLE SCLEROSIS
     Dosage: MAINTENANCE DOSE
     Route: 048
     Dates: start: 20180827

REACTIONS (5)
  - Accidental overdose [Unknown]
  - Depression [Unknown]
  - Loss of consciousness [Unknown]
  - Death [Fatal]
  - Asphyxia [Unknown]

NARRATIVE: CASE EVENT DATE: 20200115
